FAERS Safety Report 22144483 (Version 2)
Quarter: 2023Q2

REPORT INFORMATION
  Report Type: Spontaneous
  Country: SG (occurrence: None)
  Receive Date: 20230328
  Receipt Date: 20230427
  Transmission Date: 20230721
  Serious: Yes (Other)
  Sender: FDA-Public Use
  Company Number: SG-ROCHE-3282349

PATIENT
  Age: 60 Year
  Sex: Female

DRUGS (1)
  1. KADCYLA [Suspect]
     Active Substance: ADO-TRASTUZUMAB EMTANSINE
     Indication: Breast cancer
     Route: 065

REACTIONS (7)
  - Lymphoma operation [Unknown]
  - Osteoporosis [Unknown]
  - Back pain [Unknown]
  - Ill-defined disorder [Unknown]
  - Liver disorder [Unknown]
  - Papillary thyroid cancer [Unknown]
  - Lymphadenectomy [Unknown]
